FAERS Safety Report 25676266 (Version 2)
Quarter: 2025Q3

REPORT INFORMATION
  Report Type: Spontaneous
  Country: US (occurrence: US)
  Receive Date: 20250813
  Receipt Date: 20250912
  Transmission Date: 20251021
  Serious: Yes (Other)
  Sender: SANOFI AVENTIS
  Company Number: US-SANOFI-02614454

PATIENT
  Age: 25 Year
  Sex: Female

DRUGS (1)
  1. DUPIXENT [Suspect]
     Active Substance: DUPILUMAB
     Indication: Eczema
     Dosage: 300 MG, QOW
     Route: 065
     Dates: start: 2020, end: 2023

REACTIONS (21)
  - Lyme disease [Not Recovered/Not Resolved]
  - Condition aggravated [Not Recovered/Not Resolved]
  - Epstein-Barr virus infection [Not Recovered/Not Resolved]
  - Condition aggravated [Not Recovered/Not Resolved]
  - Infection [Unknown]
  - Decreased immune responsiveness [Unknown]
  - Mental disorder [Unknown]
  - Confusional state [Unknown]
  - Streptococcal infection [Recovered/Resolved with Sequelae]
  - Candida infection [Recovered/Resolved with Sequelae]
  - Skin infection [Recovered/Resolved with Sequelae]
  - Rash [Recovered/Resolved with Sequelae]
  - Fatigue [Unknown]
  - Pyrexia [Unknown]
  - Nausea [Unknown]
  - Myalgia [Unknown]
  - Headache [Unknown]
  - Eye infection [Unknown]
  - Dizziness [Unknown]
  - Eye irritation [Unknown]
  - Arthralgia [Unknown]

NARRATIVE: CASE EVENT DATE: 20230101
